FAERS Safety Report 8904021 (Version 2)
Quarter: 2013Q1

REPORT INFORMATION
  Report Type: Spontaneous
  Country: US (occurrence: US)
  Receive Date: 20121112
  Receipt Date: 20130122
  Transmission Date: 20140127
  Serious: No
  Sender: FDA-Public Use
  Company Number: US-ASTRAZENECA-2012SE82535

PATIENT
  Age: 56 Year
  Sex: Male

DRUGS (2)
  1. TOPROL XL [Suspect]
     Route: 048
  2. CRESTOR [Suspect]
     Route: 048

REACTIONS (5)
  - Gait disturbance [Recovered/Resolved]
  - Malaise [Recovered/Resolved]
  - Blood cholesterol increased [Recovered/Resolved]
  - Lethargy [Recovered/Resolved]
  - Fatigue [Recovered/Resolved]
